FAERS Safety Report 6188590-2 (Version None)
Quarter: 2009Q2

REPORT INFORMATION
  Report Type: 
  Country: None (occurrence: None)
  Receive Date: 20090513
  Receipt Date: 20090505
  Transmission Date: 20091009
  Serious: Yes (Hospitalization)
  Sender: FDA-Public Use
  Company Number: A0782644A

PATIENT
  Age: 62 Year
  Sex: Male

DRUGS (1)
  1. KIVEXA [Suspect]
     Indication: DRUG USE FOR UNKNOWN INDICATION
     Route: 065

REACTIONS (3)
  - CARDIAC ARREST [None]
  - MENTAL IMPAIRMENT [None]
  - MYOCARDIAL INFARCTION [None]
